FAERS Safety Report 7958326-0 (Version None)
Quarter: 2011Q4

REPORT INFORMATION
  Report Type: 
  Country: None (occurrence: None)
  Receive Date: 20111205
  Receipt Date: 20111201
  Transmission Date: 20120403
  Serious: Yes (Other)
  Sender: FDA-Public Use
  Company Number: US-ACTELION-A-US2010-39828

PATIENT

DRUGS (16)
  1. FUROSEMIDE [Concomitant]
  2. MUCOMYST [Concomitant]
  3. ACETAMINOPHEN [Concomitant]
  4. TRACLEER [Suspect]
     Indication: PULMONARY ARTERIAL HYPERTENSION
     Dosage: 62.5 MG, BID
     Route: 048
     Dates: start: 20100809, end: 20101216
  5. TRACLEER [Suspect]
     Dosage: 62.5 MG, QD
     Route: 048
     Dates: start: 20110107
  6. BENZONATATE [Concomitant]
  7. CALCIUM D [Concomitant]
  8. WARFARIN SODIUM [Concomitant]
  9. GLYBURIDE [Concomitant]
  10. MULTIVITAMIN [Concomitant]
  11. POTASSIUM CHLORIDE [Concomitant]
  12. AMLODIPINE [Concomitant]
  13. ASPIRIN [Concomitant]
  14. ACTOS [Concomitant]
  15. CLINDAMYCIN [Concomitant]
  16. LASIX [Concomitant]

REACTIONS (14)
  - SALIVARY DUCT OBSTRUCTION [None]
  - VISUAL IMPAIRMENT [None]
  - JOINT SWELLING [None]
  - FATIGUE [None]
  - CONDITION AGGRAVATED [None]
  - PAIN [None]
  - ASTHENIA [None]
  - PAIN IN EXTREMITY [None]
  - GOITRE [None]
  - THYROID NEOPLASM [None]
  - ORAL PAIN [None]
  - OROPHARYNGEAL DISCOMFORT [None]
  - GAIT DISTURBANCE [None]
  - LOCAL SWELLING [None]
